FAERS Safety Report 6159612-X (Version None)
Quarter: 2009Q2

REPORT INFORMATION
  Report Type: 
  Country: None (occurrence: None)
  Receive Date: 20090415
  Receipt Date: 20090415
  Transmission Date: 20091009
  Serious: Yes (Hospitalization, Other)
  Sender: FDA-Public Use
  Company Number: None

PATIENT
  Sex: Female
  Weight: 72.5755 kg

DRUGS (1)
  1. LAMICTAL [Suspect]
     Dosage: 200 MG 1 HS
     Dates: start: 20060101

REACTIONS (7)
  - HALLUCINATION [None]
  - HEADACHE [None]
  - MANIA [None]
  - PRODUCT SUBSTITUTION ISSUE [None]
  - RASH [None]
  - TREATMENT FAILURE [None]
  - TREMOR [None]
